FAERS Safety Report 8584120-6 (Version None)
Quarter: 2012Q3

REPORT INFORMATION
  Report Type: 
  Country: None (occurrence: None)
  Receive Date: 20120810
  Receipt Date: 20120726
  Transmission Date: 20120928
  Serious: Yes (Life-Threatening, Hospitalization, Disabling, Other)
  Sender: FDA-Public Use
  Company Number: US-009507513-1207USA012075

PATIENT

DRUGS (4)
  1. COPEGUS [Suspect]
     Dosage: 400-800 MG
     Route: 048
  2. DOXYCYCLINE HCL [Concomitant]
     Route: 048
  3. PEGASYS [Suspect]
     Route: 058
  4. VICTRELIS [Suspect]
     Route: 048

REACTIONS (5)
  - PANCYTOPENIA [None]
  - BRONCHITIS BACTERIAL [None]
  - MYOCARDIAL INFARCTION [None]
  - ACUTE MYOCARDIAL INFARCTION [None]
  - ANAEMIA [None]
